FAERS Safety Report 4686206-5 (Version None)
Quarter: 2005Q2

REPORT INFORMATION
  Report Type: 
  Country: None (occurrence: None)
  Receive Date: 20050607
  Receipt Date: 20050523
  Transmission Date: 20051028
  Serious: Yes (Other)
  Sender: FDA-Public Use
  Company Number: 2005078617

PATIENT
  Age: 85 Year
  Sex: Male
  Weight: 83.0083 kg

DRUGS (1)
  1. CELEBREX [Suspect]
     Indication: ARTHRITIS

REACTIONS (3)
  - ARTHRALGIA [None]
  - CARDIAC DISORDER [None]
  - CARDIOMEGALY [None]
